FAERS Safety Report 4579726-5 (Version None)
Quarter: 2005Q1

REPORT INFORMATION
  Report Type: 
  Country: None (occurrence: None)
  Receive Date: 20050210
  Receipt Date: 20050201
  Transmission Date: 20050727
  Serious: Yes (Other)
  Sender: FDA-Public Use
  Company Number: HQWYE465610JAN05

PATIENT
  Age: 62 Year
  Sex: Female

DRUGS (2)
  1. EFFEXOR XR [Suspect]
     Dosage: 37.56 MG ^THE NEXT DAY AND SO FORTH^
     Dates: start: 20040101
  2. CELEXA [Suspect]
     Dates: end: 20040101

REACTIONS (3)
  - DRUG INTERACTION [None]
  - HOMICIDAL IDEATION [None]
  - SUICIDAL IDEATION [None]
